FAERS Safety Report 15398692 (Version 1)
Quarter: 2018Q3

REPORT INFORMATION
  Report Type: Spontaneous
  Country: US (occurrence: US)
  Receive Date: 20180918
  Receipt Date: 20180918
  Transmission Date: 20181010
  Serious: No
  Sender: FDA-Public Use
  Company Number: US-BRAINTREE LABORATORIES-170595

PATIENT
  Age: 60 Year
  Sex: Female
  Weight: 58.06 kg

DRUGS (1)
  1. SUPREP BOWEL PREP [Suspect]
     Active Substance: MAGNESIUM SULFATE\POTASSIUM SULFATE\SODIUM SULFATE
     Indication: COLONOSCOPY
     Dosage: 0.5 X 6 OZ.BOTTLE
     Route: 048
     Dates: start: 20171019, end: 20171019

REACTIONS (12)
  - Vision blurred [None]
  - Gastrointestinal pain [None]
  - Chills [None]
  - Vomiting [None]
  - Nausea [None]
  - Headache [None]
  - Dizziness [None]
  - Dry mouth [None]
  - Urine output decreased [None]
  - Back pain [None]
  - Throat tightness [None]
  - Coating in mouth [None]

NARRATIVE: CASE EVENT DATE: 20171019
